FAERS Safety Report 5498627-1 (Version None)
Quarter: 2007Q4

REPORT INFORMATION
  Report Type: 
  Country: None (occurrence: None)
  Receive Date: 20071024
  Receipt Date: 20071024
  Transmission Date: 20080405
  Serious: Yes (Death, Life-Threatening, Hospitalization)
  Sender: FDA-Public Use
  Company Number: None

PATIENT
  Age: 85 Year
  Sex: Female
  Weight: 60 kg

DRUGS (8)
  1. COUMADIN [Suspect]
     Indication: ATRIAL FIBRILLATION
     Dosage: 2 MG QHS PO
     Route: 048
     Dates: start: 20050101, end: 20070622
  2. COUMADIN [Suspect]
     Indication: CEREBROVASCULAR ACCIDENT
     Dosage: 2 MG QHS PO
     Route: 048
     Dates: start: 20050101, end: 20070622
  3. ASPIRIN [Suspect]
     Indication: PROPHYLAXIS
     Dosage: 81 MG QDAY PO
     Route: 048
     Dates: start: 20050101, end: 20070622
  4. ALLOPURINOL [Concomitant]
  5. COZAAR [Concomitant]
  6. FAMOTIDINE [Concomitant]
  7. METOPROLOL TARTRATE [Concomitant]
  8. SODIUM BICARBONATE [Concomitant]

REACTIONS (17)
  - ACTIVATED PARTIAL THROMBOPLASTIN TIME PROLONGED [None]
  - AZOTAEMIA [None]
  - CARDIAC ARREST [None]
  - COAGULOPATHY [None]
  - DISSEMINATED INTRAVASCULAR COAGULATION [None]
  - ELECTROMECHANICAL DISSOCIATION [None]
  - HYPOGLYCAEMIA [None]
  - INTERNATIONAL NORMALISED RATIO INCREASED [None]
  - KLEBSIELLA INFECTION [None]
  - METABOLIC ACIDOSIS [None]
  - PROTEUS INFECTION [None]
  - PULSE ABSENT [None]
  - RENAL FAILURE ACUTE [None]
  - RETROPERITONEAL HAEMORRHAGE [None]
  - SEPTIC SHOCK [None]
  - SHOCK HAEMORRHAGIC [None]
  - TACHYCARDIA [None]
